FAERS Safety Report 13888166 (Version 1)
Quarter: 2017Q3

REPORT INFORMATION
  Report Type: Spontaneous
  Country: DE (occurrence: DE)
  Receive Date: 20170822
  Receipt Date: 20170822
  Transmission Date: 20171127
  Serious: Yes (Other)
  Sender: FDA-Public Use
  Company Number: DE-SUN PHARMACEUTICAL INDUSTRIES LTD-2017RR-147823

PATIENT
  Age: 29 Year
  Sex: Female
  Weight: 52 kg

DRUGS (1)
  1. CIPROFLOXACIN. [Suspect]
     Active Substance: CIPROFLOXACIN
     Indication: PYELONEPHRITIS
     Dosage: 500
     Route: 048
     Dates: start: 20170516

REACTIONS (9)
  - Gait disturbance [Unknown]
  - Abdominal discomfort [Unknown]
  - Dizziness [Unknown]
  - Balance disorder [Unknown]
  - Coordination abnormal [Unknown]
  - Abdominal pain lower [Unknown]
  - Visual impairment [Unknown]
  - Cardiovascular disorder [Unknown]
  - Depression [Recovered/Resolved]

NARRATIVE: CASE EVENT DATE: 20170516
